FAERS Safety Report 8832377 (Version 3)
Quarter: 2017Q4

REPORT INFORMATION
  Report Type: Spontaneous
  Country: US (occurrence: US)
  Receive Date: 20121009
  Receipt Date: 20171023
  Transmission Date: 20180321
  Serious: Yes (Death, Hospitalization, Other)
  Sender: FDA-Public Use
  Company Number: US-PFIZER INC-2012246366

PATIENT
  Age: 81 Year
  Sex: Female

DRUGS (1)
  1. CELEBREX [Suspect]
     Active Substance: CELECOXIB
     Dosage: 800 MG, UNK

REACTIONS (7)
  - Gastric ulcer haemorrhage [Fatal]
  - Cardio-respiratory arrest [Fatal]
  - Gastric ulcer perforation [Fatal]
  - Hypertension [Fatal]
  - Acute respiratory failure [Fatal]
  - Aspiration [Fatal]
  - Emphysema [Fatal]
